FAERS Safety Report 16786486 (Version 1)
Quarter: 2019Q3

REPORT INFORMATION
  Report Type: Spontaneous
  Country: US (occurrence: US)
  Receive Date: 20190909
  Receipt Date: 20190909
  Transmission Date: 20191005
  Serious: No
  Sender: FDA-Public Use
  Company Number: US-GLAXOSMITHKLINE-US2019162064

PATIENT
  Sex: Female

DRUGS (3)
  1. SPIRIVA [Interacting]
     Active Substance: TIOTROPIUM BROMIDE MONOHYDRATE
     Indication: PRODUCT USED FOR UNKNOWN INDICATION
     Dosage: UNK
  2. TRELEGY ELLIPTA [Suspect]
     Active Substance: FLUTICASONE FUROATE\UMECLIDINIUM BROMIDE\VILANTEROL TRIFENATATE
     Indication: PRODUCT USED FOR UNKNOWN INDICATION
     Dosage: 1 PUFF(S), QD
     Route: 055
     Dates: start: 20190831
  3. SYMBICORT [Interacting]
     Active Substance: BUDESONIDE\FORMOTEROL FUMARATE DIHYDRATE
     Indication: PRODUCT USED FOR UNKNOWN INDICATION
     Dosage: UNK

REACTIONS (9)
  - Chest discomfort [Unknown]
  - Eye irritation [Recovering/Resolving]
  - Cough [Unknown]
  - Dry mouth [Unknown]
  - Dysphonia [Recovering/Resolving]
  - Chest pain [Unknown]
  - Wheezing [Unknown]
  - Ocular discomfort [Recovering/Resolving]
  - Labelled drug-drug interaction medication error [Recovered/Resolved]
